FAERS Safety Report 9018245 (Version 1)
Quarter: 2013Q1

REPORT INFORMATION
  Report Type: Spontaneous
  Country: US (occurrence: None)
  Receive Date: 20130111
  Receipt Date: 20130111
  Transmission Date: 20140127
  Serious: No
  Sender: FDA-Public Use
  Company Number: None

PATIENT
  Age: 47 Year
  Sex: Female

DRUGS (1)
  1. AUBAGIO [Suspect]
     Dosage: 14 MG DAILY PO PO
     Route: 048
     Dates: start: 20121219, end: 20130106

REACTIONS (5)
  - Nausea [None]
  - Headache [None]
  - Arthralgia [None]
  - Joint swelling [None]
  - Hypertension [None]
